FAERS Safety Report 12657859 (Version 2)
Quarter: 2016Q4

REPORT INFORMATION
  Report Type: Spontaneous
  Country: US (occurrence: US)
  Receive Date: 20160816
  Receipt Date: 20161117
  Transmission Date: 20170207
  Serious: Yes (Other)
  Sender: FDA-Public Use
  Company Number: US-IMPAX LABORATORIES, INC-2016-IPXL-00866

PATIENT
  Age: 24 Year
  Sex: Male

DRUGS (3)
  1. PROBIOTIC COMPLEX [Concomitant]
     Indication: LYME DISEASE
     Dosage: 20 BILLION CFU, UNK
     Route: 065
     Dates: start: 2011
  2. DOXYCYCLINE. [Suspect]
     Active Substance: DOXYCYCLINE
     Indication: LYME DISEASE
     Dosage: 100 MG, EVERY 12 HOURS
     Route: 048
     Dates: start: 2011
  3. SACCHAROMYCES BOULARDII [Concomitant]
     Active Substance: SACCHAROMYCES CEREVISIAE
     Indication: LYME DISEASE
     Dosage: 500 MG, UNK
     Route: 065
     Dates: start: 2011

REACTIONS (1)
  - Jarisch-Herxheimer reaction [Recovering/Resolving]

NARRATIVE: CASE EVENT DATE: 2011
